FAERS Safety Report 8350072 (Version 3)
Quarter: 2014Q2

REPORT INFORMATION
  Report Type: Spontaneous
  Country: US (occurrence: US)
  Receive Date: 20120124
  Receipt Date: 20140417
  Transmission Date: 20141212
  Serious: Yes (Hospitalization)
  Sender: FDA-Public Use
  Company Number: US-RANBAXY-2012US-51949

PATIENT
  Age: 20 Year
  Sex: Male

DRUGS (4)
  1. RISPERIDONE [Suspect]
     Indication: PSYCHOPATHIC PERSONALITY
     Dosage: 0.25 MG EACH MORNING AND 1MG EACH EVENING
     Route: 065
  2. GILENYA [Interacting]
     Indication: MULTIPLE SCLEROSIS
     Dosage: 0.5 MG, SINGLE
     Route: 048
  3. METHYLPREDNISOLONE [Concomitant]
     Indication: MULTIPLE SCLEROSIS
     Dosage: 1 G, DAILY
     Route: 042
  4. PREDNISONE [Concomitant]
     Indication: MULTIPLE SCLEROSIS
     Route: 048

REACTIONS (6)
  - Drug interaction [Recovered/Resolved]
  - Cardiac arrest [Recovered/Resolved]
  - Nausea [Unknown]
  - Malaise [Unknown]
  - Convulsion [Unknown]
  - Bradycardia [Recovered/Resolved]
